FAERS Safety Report 21388002 (Version 2)
Quarter: 2022Q4

REPORT INFORMATION
  Report Type: Spontaneous
  Country: US (occurrence: None)
  Receive Date: 20220928
  Receipt Date: 20221102
  Transmission Date: 20230113
  Serious: Yes (Other)
  Sender: FDA-Public Use
  Company Number: 2022A325048

PATIENT
  Age: 619 Month
  Sex: Male
  Weight: 99.3 kg

DRUGS (6)
  1. FARXIGA [Suspect]
     Active Substance: DAPAGLIFLOZIN PROPANEDIOL
     Indication: Diabetes mellitus
     Route: 048
     Dates: start: 202205
  2. FARXIGA [Suspect]
     Active Substance: DAPAGLIFLOZIN PROPANEDIOL
     Indication: Chronic kidney disease
     Route: 048
     Dates: start: 202205
  3. BYDUREON BCISE [Suspect]
     Active Substance: EXENATIDE
     Indication: Diabetes mellitus
     Route: 058
  4. BYDUREON BCISE [Suspect]
     Active Substance: EXENATIDE
     Indication: Diabetes mellitus
     Route: 058
     Dates: start: 20220713
  5. BYDUREON BCISE [Suspect]
     Active Substance: EXENATIDE
     Indication: Diabetes mellitus
     Route: 058
     Dates: start: 20220809
  6. BYDUREON BCISE [Suspect]
     Active Substance: EXENATIDE
     Indication: Diabetes mellitus
     Route: 058
     Dates: start: 20220906

REACTIONS (9)
  - Glycosylated haemoglobin increased [Unknown]
  - Decreased appetite [Not Recovered/Not Resolved]
  - Incorrect dose administered by device [Unknown]
  - Injury associated with device [Unknown]
  - Device use issue [Unknown]
  - Device delivery system issue [Unknown]
  - Intentional device misuse [Unknown]
  - Product storage error [Unknown]
  - Device leakage [Unknown]

NARRATIVE: CASE EVENT DATE: 20220601
